FAERS Safety Report 6736701-X (Version None)
Quarter: 2010Q2

REPORT INFORMATION
  Report Type: 
  Country: None (occurrence: None)
  Receive Date: 20100520
  Receipt Date: 20100520
  Transmission Date: 20101027
  Serious: Yes (Life-Threatening, Hospitalization)
  Sender: FDA-Public Use
  Company Number: None

PATIENT
  Age: 41 Year
  Sex: Female
  Weight: 101 kg

DRUGS (1)
  1. HEPARIN SODIUM INJ [Suspect]
     Indication: THROMBOSIS PROPHYLAXIS
     Dosage: 5000 UNITS Q8 SQ
     Route: 058
     Dates: start: 20100419, end: 20100503

REACTIONS (2)
  - HAEMODYNAMIC INSTABILITY [None]
  - PULMONARY EMBOLISM [None]
